FAERS Safety Report 15573663 (Version 1)
Quarter: 2018Q4

REPORT INFORMATION
  Report Type: Spontaneous
  Country: IT (occurrence: IT)
  Receive Date: 20181101
  Receipt Date: 20181101
  Transmission Date: 20190205
  Serious: Yes (Other)
  Sender: FDA-Public Use
  Company Number: IT-AMGEN-ITASP2018152980

PATIENT
  Sex: Female
  Weight: 173 kg

DRUGS (1)
  1. ENBREL [Suspect]
     Active Substance: ETANERCEPT
     Indication: PSORIATIC ARTHROPATHY
     Dosage: 50 MG, UNK
     Route: 058
     Dates: start: 201001, end: 201807

REACTIONS (3)
  - Injection site mass [Unknown]
  - Lung infection [Unknown]
  - Injection site pain [Unknown]

NARRATIVE: CASE EVENT DATE: 2016
